FAERS Safety Report 21957689 (Version 2)
Quarter: 2023Q1

REPORT INFORMATION
  Report Type: Spontaneous
  Country: BR (occurrence: BR)
  Receive Date: 20230206
  Receipt Date: 20230215
  Transmission Date: 20230417
  Serious: Yes (Hospitalization, Other)
  Sender: FDA-Public Use
  Company Number: BR-009507513-2302BRA000785

PATIENT
  Age: 72 Year
  Sex: Female
  Weight: 67 kg

DRUGS (9)
  1. KEYTRUDA [Suspect]
     Active Substance: PEMBROLIZUMAB
     Indication: Breast cancer female
     Dosage: 200 MG EVERY 21 DAYS
     Route: 042
  2. KEYTRUDA [Suspect]
     Active Substance: PEMBROLIZUMAB
     Dosage: 3RD CYCLE: 200 MG EVERY 21 DAYS
     Route: 042
     Dates: start: 20221118, end: 20221118
  3. KEYTRUDA [Suspect]
     Active Substance: PEMBROLIZUMAB
     Dosage: 4TH CYCLE: 200 MG EVERY 21 DAYS
     Route: 042
     Dates: start: 20221219, end: 20221219
  4. CARBOPLATIN [Suspect]
     Active Substance: CARBOPLATIN
     Indication: Breast cancer female
     Dosage: AUC 1.5 (ON D1, D8 AND D15. THE INTERVAL BETWEEN CYCLES IS 21 DAYS . PROGRAMMED A TOTAL OF 4 CYCLES
     Route: 042
  5. CARBOPLATIN [Suspect]
     Active Substance: CARBOPLATIN
     Dosage: AUC 1.5, ON D1, D8 AND D15. THE INTERVAL BETWEEN CYCLES IS 21 DAYS. AUC 1.5 (ON D1, D8 AND D15. THE
     Route: 042
     Dates: start: 20221125, end: 20221125
  6. CARBOPLATIN [Suspect]
     Active Substance: CARBOPLATIN
     Dosage: AUC 1.5 (ON D1, D8 AND D15. THE INTERVAL BETWEEN CYCLES IS 21 DAYS . PROGRAMMED A TOTAL OF 4 CYCLES
     Route: 042
     Dates: start: 20221202, end: 20221202
  7. PACLITAXEL [Suspect]
     Active Substance: PACLITAXEL
     Indication: Breast cancer female
     Dosage: 80 MILLIGRAMS/SQ. METER (ADMINISTRATION ON D1, D8 AND D15 OF EACH CYCLE. THE INTERVAL BETWEEN CYCLES
     Route: 042
  8. PACLITAXEL [Suspect]
     Active Substance: PACLITAXEL
     Dosage: 80 MILLIGRAMS/SQ. METER (ADMINISTRATION ON D1, D8 AND D15 OF EACH CYCLE. THE INTERVAL BETWEEN CYCLES
     Route: 042
     Dates: start: 20221125, end: 20221125
  9. PACLITAXEL [Suspect]
     Active Substance: PACLITAXEL
     Dosage: 80 MILLIGRAMS/SQ. METER (ADMINISTRATION ON D1, D8 AND D15 OF EACH CYCLE. THE INTERVAL BETWEEN CYCLES
     Route: 042
     Dates: start: 20221202, end: 20221202

REACTIONS (9)
  - Febrile neutropenia [Recovered/Resolved]
  - Toxic encephalopathy [Recovered/Resolved]
  - Neutropenia [Recovered/Resolved]
  - Leukopenia [Recovered/Resolved]
  - Aspartate aminotransferase increased [Recovered/Resolved]
  - Alanine aminotransferase increased [Recovered/Resolved]
  - Drug-induced liver injury [Unknown]
  - Gamma-glutamyltransferase increased [Recovered/Resolved]
  - Product use issue [Unknown]

NARRATIVE: CASE EVENT DATE: 20221201
